FAERS Safety Report 17679940 (Version 3)
Quarter: 2020Q4

REPORT INFORMATION
  Report Type: Spontaneous
  Country: US (occurrence: US)
  Receive Date: 20200417
  Receipt Date: 20201217
  Transmission Date: 20210113
  Serious: Yes (Life-Threatening, Other)
  Sender: FDA-Public Use
  Company Number: US-PFIZER INC-2020157186

PATIENT
  Age: 7 Week
  Sex: Female
  Weight: 4.8 kg

DRUGS (7)
  1. NITROUS OXIDE AIR [Concomitant]
     Active Substance: NITROUS OXIDE
     Dosage: UNK (INHALATIONAL INDUCTION)
  2. SEVOFLURANE. [Concomitant]
     Active Substance: SEVOFLURANE
     Dosage: UNK (WAS TURNED TO 8%)
  3. SEVOFLURANE. [Concomitant]
     Active Substance: SEVOFLURANE
     Dosage: UNK (INHALATIONAL INDUCTION)
  4. BUPIVACAINE HCL [Suspect]
     Active Substance: BUPIVACAINE HYDROCHLORIDE
     Indication: LOCAL ANAESTHESIA
     Dosage: 2 ML, UNK
  5. SEVOFLURANE. [Concomitant]
     Active Substance: SEVOFLURANE
     Dosage: UNK (TITRATED TO 3%)
  6. EPINEPHRINE. [Suspect]
     Active Substance: EPINEPHRINE
     Dosage: 52 UG/KG, UNK (250 UG, 2 ML OF EPINEPHRINE)
  7. ROCURONIUM [Concomitant]
     Active Substance: ROCURONIUM BROMIDE
     Indication: PARALYSIS
     Dosage: 0.6 MG/KG, UNK

REACTIONS (2)
  - Accidental overdose [Recovering/Resolving]
  - Electrocardiogram ST segment depression [Recovering/Resolving]
